FAERS Safety Report 15160213 (Version 1)
Quarter: 2018Q3

REPORT INFORMATION
  Report Type: Spontaneous
  Country: US (occurrence: US)
  Receive Date: 20180621
  Receipt Date: 20180621
  Transmission Date: 20181010
  Serious: No
  Sender: FDA-Public Use
  Company Number: None

PATIENT
  Age: 61 Year
  Sex: Female

DRUGS (1)
  1. TRUVADA [Suspect]
     Active Substance: EMTRICITABINE\TENOFOVIR DISOPROXIL FUMARATE
     Dates: start: 20170626, end: 20180621

REACTIONS (3)
  - Economic problem [None]
  - Inappropriate schedule of drug administration [None]
  - Wrong technique in product usage process [None]

NARRATIVE: CASE EVENT DATE: 20180621
